FAERS Safety Report 4505304-X (Version None)
Quarter: 2004Q4

REPORT INFORMATION
  Report Type: 
  Country: None (occurrence: None)
  Receive Date: 20041119
  Receipt Date: 20041115
  Transmission Date: 20050328
  Serious: Yes (Death, Hospitalization)
  Sender: FDA-Public Use
  Company Number: US-BRISTOL-MYERS SQUIBB COMPANY-12764783

PATIENT
  Age: 69 Year
  Sex: Male

DRUGS (7)
  1. CETUXIMAB [Suspect]
     Indication: PANCREATIC CARCINOMA
     Dosage: 1ST DOSE 11-OCT-04 (400MG/M2).DOSE DELAYED.TOTAL DOSE ADMINISTERED THIS COURSE 1772MG
     Dates: start: 20041102, end: 20041102
  2. DOCETAXEL [Suspect]
     Indication: PANCREATIC CARCINOMA
     Dosage: 1ST COURSE 11-OCT-04,DOSE DELAYED 9 DAYS.
     Dates: start: 20041102, end: 20041102
  3. IRINOTECAN [Suspect]
     Indication: PANCREATIC CARCINOMA
     Dosage: 1ST COURSE 11-OCT-04,DOSE REDUCED/DELAYED
     Dates: start: 20041102, end: 20041102
  4. LOVENOX [Concomitant]
     Dates: start: 20041108
  5. MARINOL [Concomitant]
  6. OXANDROLONE [Concomitant]
  7. TOPROL-XL [Concomitant]

REACTIONS (23)
  - ACTIVATED PARTIAL THROMBOPLASTIN TIME PROLONGED [None]
  - ALANINE AMINOTRANSFERASE INCREASED [None]
  - ASPARTATE AMINOTRANSFERASE INCREASED [None]
  - ATELECTASIS [None]
  - BLOOD CALCIUM DECREASED [None]
  - BLOOD CREATININE INCREASED [None]
  - BLOOD PH DECREASED [None]
  - BRAIN NATRIURETIC PEPTIDE INCREASED [None]
  - COMA [None]
  - DYSPNOEA [None]
  - FEBRILE NEUTROPENIA [None]
  - HAEMOGLOBIN DECREASED [None]
  - HYPERGLYCAEMIA [None]
  - HYPOALBUMINAEMIA [None]
  - HYPOMAGNESAEMIA [None]
  - HYPOTENSION [None]
  - INTERNATIONAL NORMALISED RATIO INCREASED [None]
  - NEUTROPHIL COUNT DECREASED [None]
  - PANCYTOPENIA [None]
  - PLATELET COUNT DECREASED [None]
  - PROTHROMBIN TIME PROLONGED [None]
  - TACHYPNOEA [None]
  - WHITE BLOOD CELL COUNT DECREASED [None]
